FAERS Safety Report 9478643 (Version 2)
Quarter: 2013Q3

REPORT INFORMATION
  Report Type: Spontaneous
  Country: FR (occurrence: FR)
  Receive Date: 20130827
  Receipt Date: 20130827
  Transmission Date: 20140515
  Serious: Yes (Other)
  Sender: FDA-Public Use
  Company Number: FR-B.I. PHARMACEUTICALS,INC./RIDGEFIELD-2013-FF-01796FF

PATIENT
  Sex: Female

DRUGS (5)
  1. PRADAXA [Suspect]
     Indication: ATRIAL FIBRILLATION
     Dosage: 220 MG
     Route: 048
     Dates: start: 20130323
  2. ALTEISDUO [Concomitant]
  3. LERCAN [Concomitant]
  4. FLECAINE [Concomitant]
  5. LEVOTHYROX [Concomitant]

REACTIONS (2)
  - Haematoma [Recovered/Resolved]
  - Skin necrosis [Recovered/Resolved]
